FAERS Safety Report 5842874-3 (Version None)
Quarter: 2008Q3

REPORT INFORMATION
  Report Type: 
  Country: None (occurrence: None)
  Receive Date: 20080813
  Receipt Date: 20080807
  Transmission Date: 20090109
  Serious: Yes (Death)
  Sender: FDA-Public Use
  Company Number: US-CELGENEUS-163-21880-08080355

PATIENT
  Sex: Female

DRUGS (2)
  1. REVLIMID [Suspect]
     Indication: MYELODYSPLASTIC SYNDROME
     Route: 048
     Dates: start: 20080609, end: 20080701
  2. REVLIMID [Suspect]
     Route: 048
     Dates: start: 20080514, end: 20080601

REACTIONS (2)
  - LEUKAEMIA [None]
  - PNEUMONIA [None]
